FAERS Safety Report 7456436-8 (Version None)
Quarter: 2011Q2

REPORT INFORMATION
  Report Type: 
  Country: None (occurrence: None)
  Receive Date: 20110503
  Receipt Date: 20110419
  Transmission Date: 20111010
  Serious: Yes (Hospitalization)
  Sender: FDA-Public Use
  Company Number: US-CELGENEUS-163-20785-11040968

PATIENT
  Sex: Female
  Weight: 85 kg

DRUGS (21)
  1. MELPHALAN [Concomitant]
     Indication: MULTIPLE MYELOMA
     Dosage: .25 MILLIGRAM/KILOGRAM
     Route: 048
     Dates: start: 20110307
  2. PREDNISOLONE [Concomitant]
     Dosage: 60 MILLIGRAM
     Route: 048
  3. FLUIDS [Concomitant]
     Route: 051
  4. COMPAZINE [Concomitant]
     Indication: NAUSEA
     Dosage: 10 MILLIGRAM
     Route: 065
  5. VALTREX [Concomitant]
     Indication: PROPHYLAXIS
     Dosage: 500 MILLIGRAM
     Route: 065
  6. AVELOX [Concomitant]
     Route: 065
  7. LASIX [Concomitant]
     Route: 065
  8. MORPHINE SULFATE [Concomitant]
     Indication: PAIN
     Dosage: 15 MILLIGRAM
     Route: 065
  9. COMPAZINE [Concomitant]
     Indication: VOMITING
  10. ASPIRIN [Concomitant]
     Indication: PROPHYLAXIS
     Dosage: 81 MILLIGRAM
     Route: 065
  11. MULTI-VITAMINS [Concomitant]
     Route: 065
  12. DEXAMETHASONE [Concomitant]
     Route: 048
     Dates: start: 20110414
  13. THALOMID [Suspect]
     Indication: MULTIPLE MYELOMA
     Dosage: 100 MILLIGRAM
     Route: 048
     Dates: start: 20110307
  14. VITAMIN C [Concomitant]
     Dosage: 500 MILLIGRAM
     Route: 065
  15. PANTOPRAZOLE [Concomitant]
     Indication: PROPHYLAXIS
     Dosage: 40 MILLIGRAM
     Route: 065
  16. PREDNISOLONE [Concomitant]
     Indication: MULTIPLE MYELOMA
     Dosage: 40 MILLIGRAM
     Route: 048
     Dates: start: 20110307
  17. PREDNISOLONE [Concomitant]
     Dosage: 20 MILLIGRAM
     Route: 048
  18. LOVENOX [Concomitant]
     Route: 065
     Dates: start: 20110401, end: 20110401
  19. WARFARIN [Concomitant]
     Route: 065
  20. WARFARIN [Concomitant]
     Route: 065
     Dates: start: 20110401
  21. NEUTRA-PHOS [Concomitant]
     Route: 065

REACTIONS (1)
  - PNEUMONIA VIRAL [None]
